FAERS Safety Report 19685144 (Version 1)
Quarter: 2021Q3

REPORT INFORMATION
  Report Type: Other
  Country: TW (occurrence: TW)
  Receive Date: 20210811
  Receipt Date: 20210811
  Transmission Date: 20211014
  Serious: Yes (Other)
  Sender: FDA-Public Use
  Company Number: TW-DEXPHARM-20211295

PATIENT
  Age: 5 Year
  Sex: Female

DRUGS (1)
  1. 2% CHLORHEXIDINE GLUCONATE IN 70% ETHANOL SOLUTION [Suspect]
     Active Substance: ALCOHOL\CHLORHEXIDINE GLUCONATE
     Indication: INFECTION PROPHYLAXIS

REACTIONS (2)
  - Keratopathy [Recovering/Resolving]
  - Chemical burns of eye [Recovering/Resolving]
